FAERS Safety Report 24911294 (Version 2)
Quarter: 2025Q1

REPORT INFORMATION
  Report Type: Spontaneous
  Country: TN (occurrence: TN)
  Receive Date: 20250131
  Receipt Date: 20250219
  Transmission Date: 20250409
  Serious: Yes (Other)
  Sender: ALNYLAM PHARMACEUTICALS
  Company Number: TN-ALNYLAM PHARMACEUTICALS, INC.-ALN-2025-000142

PATIENT

DRUGS (4)
  1. OXLUMO [Suspect]
     Active Substance: LUMASIRAN
     Indication: Primary hyperoxaluria
     Route: 058
     Dates: start: 20240504, end: 20240504
  2. OXLUMO [Suspect]
     Active Substance: LUMASIRAN
     Route: 058
     Dates: start: 20241130, end: 20241130
  3. VITAMIN B12 [Concomitant]
     Active Substance: CYANOCOBALAMIN
     Indication: Haemodialysis
     Dosage: 1 GRAM, WEEKLY
     Route: 065
  4. Epomax [Concomitant]
     Indication: Haemodialysis
     Route: 065

REACTIONS (3)
  - Spinal deformity [Not Recovered/Not Resolved]
  - Intentional product use issue [Unknown]
  - Bone pain [Not Recovered/Not Resolved]

NARRATIVE: CASE EVENT DATE: 20210701
